FAERS Safety Report 6351120-6 (Version None)
Quarter: 2009Q3

REPORT INFORMATION
  Report Type: 
  Country: None (occurrence: None)
  Receive Date: 20090912
  Receipt Date: 20090622
  Transmission Date: 20100115
  Serious: No
  Sender: FDA-Public Use
  Company Number: US-ABBOTT-07P-163-0375247-00

PATIENT
  Sex: Female
  Weight: 74.91 kg

DRUGS (8)
  1. HUMIRA [Suspect]
     Indication: PSORIATIC ARTHROPATHY
     Route: 058
     Dates: start: 20061001
  2. HUMIRA [Suspect]
     Indication: PSORIASIS
  3. LEFLUNOMIDE [Concomitant]
     Indication: PSORIATIC ARTHROPATHY
     Route: 048
  4. FOLIC ACID [Concomitant]
     Indication: ANAEMIA PROPHYLAXIS
     Route: 048
  5. NAPROSYN [Concomitant]
     Indication: PAIN
     Route: 048
  6. ESTRADIOL [Concomitant]
     Indication: HORMONE THERAPY
     Route: 048
  7. HYZAAR [Concomitant]
     Indication: BLOOD PRESSURE
     Route: 048
  8. ATORVASTATIN CALCIUM [Concomitant]
     Indication: BLOOD CHOLESTEROL
     Route: 048

REACTIONS (3)
  - INCORRECT DOSE ADMINISTERED [None]
  - INJECTION SITE IRRITATION [None]
  - INJECTION SITE NODULE [None]
